FAERS Safety Report 16677523 (Version 1)
Quarter: 2019Q3

REPORT INFORMATION
  Report Type: Spontaneous
  Country: US (occurrence: US)
  Receive Date: 20190807
  Receipt Date: 20190807
  Transmission Date: 20191004
  Serious: No
  Sender: FDA-Public Use
  Company Number: US-GALDERMA-US18024397

PATIENT
  Age: 83 Year
  Sex: Female

DRUGS (4)
  1. ALOE VERA [Concomitant]
     Active Substance: ALOE VERA LEAF
     Indication: PRODUCT USED FOR UNKNOWN INDICATION
  2. MICRODERMABRASION FACIAL BUFFING CREAM SPF 30 [Concomitant]
  3. DIFFERIN [Suspect]
     Active Substance: ADAPALENE
     Indication: SKIN DISORDER
     Dosage: 0.3%
     Route: 061
     Dates: start: 20180716, end: 20180718
  4. MAKE UP [Concomitant]

REACTIONS (2)
  - Eye irritation [Not Recovered/Not Resolved]
  - Product use in unapproved indication [Recovered/Resolved]

NARRATIVE: CASE EVENT DATE: 20180716
